FAERS Safety Report 7540908-1 (Version None)
Quarter: 2011Q2

REPORT INFORMATION
  Report Type: 
  Country: None (occurrence: None)
  Receive Date: 20110610
  Receipt Date: 20110601
  Transmission Date: 20111010
  Serious: Yes (Other)
  Sender: FDA-Public Use
  Company Number: FR-ASTRAZENECA-2011SE33955

PATIENT
  Sex: Female

DRUGS (1)
  1. XYLOCAINE [Suspect]
     Indication: ANAESTHESIA
     Route: 050

REACTIONS (5)
  - INJECTION SITE PAIN [None]
  - TACHYCARDIA [None]
  - ANAESTHESIA [None]
  - CHEST PAIN [None]
  - HALLUCINATION [None]
